FAERS Safety Report 20556658 (Version 1)
Quarter: 2022Q1

REPORT INFORMATION
  Report Type: Spontaneous
  Country: US (occurrence: US)
  Receive Date: 20220307
  Receipt Date: 20220307
  Transmission Date: 20220423
  Serious: No
  Sender: FDA-Public Use
  Company Number: ENDG21-08483

PATIENT
  Sex: Male

DRUGS (2)
  1. DANTROLENE SODIUM [Suspect]
     Active Substance: DANTROLENE SODIUM
     Indication: Product used for unknown indication
     Dosage: 0.25 MG, TID
     Route: 065
  2. DANTROLENE SODIUM [Suspect]
     Active Substance: DANTROLENE SODIUM
     Dosage: 0.50 MG, UNKNOWN
     Route: 065

REACTIONS (1)
  - Drug ineffective [Unknown]
